FAERS Safety Report 15393768 (Version 1)
Quarter: 2018Q3

REPORT INFORMATION
  Report Type: Spontaneous
  Country: US (occurrence: US)
  Receive Date: 20180917
  Receipt Date: 20180917
  Transmission Date: 20181010
  Serious: No
  Sender: FDA-Public Use
  Company Number: US-SA-2018SA259615

PATIENT
  Age: 10 Year
  Sex: Male
  Weight: 25.85 kg

DRUGS (11)
  1. DIPHENHYDRAMINE. [Concomitant]
     Active Substance: DIPHENHYDRAMINE
     Indication: ANAPHYLACTIC REACTION
     Dosage: 12.5 MG, PRN
     Route: 048
     Dates: start: 20180807
  2. LIDOCAINE/PRILOCAINE [Concomitant]
     Active Substance: LIDOCAINE\PRILOCAINE
     Indication: PREMEDICATION
     Dosage: 2.5% PRIOR TO INFUSION
     Route: 061
     Dates: start: 20180807
  3. SODIUM CHLORIDE. [Concomitant]
     Active Substance: SODIUM CHLORIDE
     Indication: FLUSHING
     Dosage: 0.9% AS DIRECTED
     Route: 042
     Dates: start: 20180807
  4. OXYCODONE/APAP [OXYCODONE;PARACETAMOL] [Concomitant]
     Dosage: 2.5 ML, EVERY 4 HRS AS PRN
     Route: 048
     Dates: start: 20130909
  5. HEPARIN [Concomitant]
     Active Substance: HEPARIN SODIUM
     Indication: FLUSHING
     Dosage: 10 UN/ML, FREQUENCY; AS DIRECTED
     Route: 042
     Dates: start: 20180807
  6. ALDURAZYME [Suspect]
     Active Substance: LARONIDASE
     Indication: MUCOPOLYSACCHARIDOSIS
     Dosage: 14.5 MG, QW
     Route: 041
  7. NORMAL SALINE [Concomitant]
     Active Substance: SODIUM CHLORIDE
     Dosage: 0.9% AS DIRECTED
     Route: 042
     Dates: start: 20180807
  8. MULTIVITAMIN [VITAMINS NOS] [Concomitant]
     Dosage: 1 TAB
     Route: 048
     Dates: start: 20180731
  9. CHILDREN^S MULTIVITAMIN [Concomitant]
     Dosage: 1 TAB
     Route: 048
     Dates: start: 20130909
  10. EPINEPHRINE. [Concomitant]
     Active Substance: EPINEPHRINE
     Indication: ANAPHYLACTIC REACTION
     Dosage: 0.15 MG
     Route: 030
     Dates: start: 20180807
  11. NASONEX [Concomitant]
     Active Substance: MOMETASONE FUROATE
     Dosage: 1DOSE AS DIRECTED
     Route: 065
     Dates: start: 20130909

REACTIONS (1)
  - Pyrexia [Unknown]
